FAERS Safety Report 6243060-8 (Version None)
Quarter: 2009Q2

REPORT INFORMATION
  Report Type: 
  Country: None (occurrence: None)
  Receive Date: 20090624
  Receipt Date: 20090612
  Transmission Date: 20091009
  Serious: Yes (Hospitalization)
  Sender: FDA-Public Use
  Company Number: US-ELI_LILLY_AND_COMPANY-US200906003068

PATIENT
  Age: 47 Year
  Sex: Male

DRUGS (7)
  1. CYMBALTA [Suspect]
     Dosage: 180 MG, 2/D
  2. TEMAZEPAM [Concomitant]
     Dosage: 75 MG, EACH EVENING
  3. LYRICA [Concomitant]
  4. OPANA [Concomitant]
  5. AMLODIPINE [Concomitant]
  6. TEKTURNA /01763601/ [Concomitant]
  7. FEXOFENADINE [Concomitant]

REACTIONS (2)
  - CARDIAC FAILURE [None]
  - OVERDOSE [None]
